FAERS Safety Report 8188113-2 (Version None)
Quarter: 2012Q1

REPORT INFORMATION
  Report Type: 
  Country: None (occurrence: None)
  Receive Date: 20120302
  Receipt Date: 20120228
  Transmission Date: 20120608
  Serious: Yes (Congenital Anomaly, Other)
  Sender: FDA-Public Use
  Company Number: GER/UKI/12/0023196

PATIENT
  Sex: Male
  Weight: 0.68 kg

DRUGS (2)
  1. LEVOTHYROXINE SODIUM [Concomitant]
  2. LAMOTRIGINE [Suspect]
     Indication: PRODUCT USED FOR UNKNOWN INDICATION
     Dosage: 25 MG, 2 IN 1 D, TRANSPLACENTAL
     Route: 062

REACTIONS (5)
  - MATERNAL DRUGS AFFECTING FOETUS [None]
  - CONGENITAL ANOMALY [None]
  - FALLOT'S TETRALOGY [None]
  - PREMATURE BABY [None]
  - CARDIAC MURMUR [None]
